FAERS Safety Report 4618158-8 (Version None)
Quarter: 2005Q1

REPORT INFORMATION
  Report Type: 
  Country: None (occurrence: None)
  Receive Date: 20050323
  Receipt Date: 20050308
  Transmission Date: 20050727
  Serious: Yes (Death)
  Sender: FDA-Public Use
  Company Number: CA_050307835

PATIENT
  Age: 55 Year
  Sex: Male

DRUGS (1)
  1. XIGRIS [Suspect]
     Dates: start: 20050301

REACTIONS (1)
  - SEPSIS [None]
